FAERS Safety Report 10925097 (Version 2)
Quarter: 2015Q2

REPORT INFORMATION
  Report Type: Spontaneous
  Country: US (occurrence: US)
  Receive Date: 20150318
  Receipt Date: 20150524
  Transmission Date: 20150821
  Serious: No
  Sender: FDA-Public Use
  Company Number: US-JNJFOC-20121105147

PATIENT
  Sex: Female
  Weight: 56.7 kg

DRUGS (3)
  1. FLUOCINOLONE [Concomitant]
     Active Substance: FLUOCINOLONE
     Indication: PSORIASIS
     Route: 048
  2. KETOCONAZOLE. [Suspect]
     Active Substance: KETOCONAZOLE
     Route: 061
  3. KETOCONAZOLE. [Suspect]
     Active Substance: KETOCONAZOLE
     Indication: SEBORRHOEIC DERMATITIS
     Dosage: TWICE A WEEK OR THRICE A WEEK
     Route: 061
     Dates: start: 20121008, end: 20121109

REACTIONS (2)
  - Alopecia [Recovered/Resolved]
  - Product use issue [Recovered/Resolved]

NARRATIVE: CASE EVENT DATE: 2012
